FAERS Safety Report 5084240-7 (Version None)
Quarter: 2006Q3

REPORT INFORMATION
  Report Type: 
  Country: None (occurrence: None)
  Receive Date: 20060821
  Receipt Date: 20060317
  Transmission Date: 20061208
  Serious: No
  Sender: FDA-Public Use
  Company Number: US-BRISTOL-MYERS SQUIBB COMPANY-13319462

PATIENT
  Age: 74 Year
  Sex: Female
  Weight: 77 kg

DRUGS (7)
  1. TEQUIN [Suspect]
     Indication: SINUSITIS
     Dates: start: 20060314
  2. COREG [Concomitant]
  3. HYZAAR [Concomitant]
  4. PRAVACHOL [Concomitant]
  5. ZETIA [Concomitant]
  6. DETROL [Concomitant]
  7. LEVOXYL [Concomitant]

REACTIONS (1)
  - HYPOTENSION [None]
